FAERS Safety Report 5945594-X (Version None)
Quarter: 2008Q4

REPORT INFORMATION
  Report Type: 
  Country: None (occurrence: None)
  Receive Date: 20081105
  Receipt Date: 20081024
  Transmission Date: 20090506
  Serious: Yes (Hospitalization)
  Sender: FDA-Public Use
  Company Number: S07-GER-05414-02

PATIENT
  Age: 2 Day
  Sex: Male
  Weight: 3.02 kg

DRUGS (2)
  1. CITALOPRAM [Suspect]
     Dosage: 40 MG (40 MG, 1 IN 1 D), TRANSPLACENTAL
     Route: 064
     Dates: start: 20070626, end: 20080320
  2. QUETIAPINE [Concomitant]

REACTIONS (6)
  - CAESAREAN SECTION [None]
  - DIARRHOEA NEONATAL [None]
  - DRUG EXPOSURE DURING PREGNANCY [None]
  - LACTOSE INTOLERANCE [None]
  - PREMATURE BABY [None]
  - WITHDRAWAL SYNDROME [None]
